FAERS Safety Report 8781390 (Version 2)
Quarter: 2012Q4

REPORT INFORMATION
  Report Type: 
  Country: US (occurrence: US)
  Receive Date: 20120913
  Receipt Date: 20121121
  Transmission Date: 20130627
  Serious: Yes (Hospitalization, Other)
  Sender: FDA-Public Use
  Company Number: US-009507513-1203USA00316

PATIENT

DRUGS (11)
  1. FOSAMAX [Suspect]
     Indication: OSTEOPENIA
     Dosage: 70 mg, qw
     Route: 048
     Dates: start: 200306, end: 200704
  2. FOSAMAX [Suspect]
     Indication: OSTEOPOROSIS
  3. FOSAMAX [Suspect]
     Indication: OSTEOPENIA
     Dosage: 70 mg, qw
     Route: 048
     Dates: start: 200705, end: 201008
  4. FOSAMAX [Suspect]
     Indication: OSTEOPOROSIS
  5. ALENDRONATE SODIUM [Suspect]
     Indication: OSTEOPENIA
     Dosage: 70 mg, qw
     Route: 048
     Dates: start: 200705, end: 201008
  6. ALENDRONATE SODIUM [Suspect]
     Indication: OSTEOPOROSIS
  7. CALCIUM (UNSPECIFIED) [Concomitant]
     Dosage: UNK, qd
     Dates: start: 2000
  8. OMEGA-3 MARINE TRIGLYCERIDES [Concomitant]
     Dosage: UNK, qd
     Dates: start: 2000
  9. FLAXSEED [Concomitant]
     Dosage: UNK, qd
     Dates: start: 2000
  10. VITAMINS (UNSPECIFIED) [Concomitant]
     Dosage: UNK, qd
     Dates: start: 2000
  11. LIDODERM [Concomitant]
     Dosage: UNK
     Dates: start: 20041101

REACTIONS (66)
  - Femur fracture [Unknown]
  - Oral surgery [Unknown]
  - Breast reconstruction [Unknown]
  - Laparoscopy [Unknown]
  - Salpingo-oophorectomy bilateral [Unknown]
  - Blood product transfusion [Unknown]
  - Ligament operation [Unknown]
  - Medical device removal [Unknown]
  - Surgery [Unknown]
  - Mastectomy [Unknown]
  - Biopsy breast [Unknown]
  - Tibia fracture [Unknown]
  - Spinal operation [Unknown]
  - Endocrine gland operation [Unknown]
  - Bunion operation [Unknown]
  - Appendicectomy [Unknown]
  - Ovarian cystectomy [Unknown]
  - Drug withdrawal convulsions [Unknown]
  - Vagal nerve stimulator removal [Unknown]
  - Conversion disorder [Unknown]
  - Overdose [Unknown]
  - Major depression [Unknown]
  - Non-cardiac chest pain [Unknown]
  - Hypoventilation [Unknown]
  - Poor venous access [Unknown]
  - Pulmonary calcification [Unknown]
  - Poor peripheral circulation [Unknown]
  - Gallbladder disorder [Unknown]
  - Fibromyalgia [Not Recovered/Not Resolved]
  - Breast hyperplasia [Unknown]
  - Eating disorder [Unknown]
  - Ascites [Unknown]
  - Pleural effusion [Unknown]
  - Tooth fracture [Unknown]
  - Arthropathy [Unknown]
  - Hallucination [Unknown]
  - Migraine [Not Recovered/Not Resolved]
  - Hypothyroidism [Unknown]
  - Fluid retention [Unknown]
  - Fatigue [Not Recovered/Not Resolved]
  - Memory impairment [Unknown]
  - Disturbance in attention [Unknown]
  - Burning sensation [Unknown]
  - Weight decreased [Unknown]
  - Hypoaesthesia [Unknown]
  - Paraesthesia [Unknown]
  - Pupillary reflex impaired [Unknown]
  - Tremor [Unknown]
  - Cervical spinal stenosis [Unknown]
  - Fall [Unknown]
  - Torticollis [Unknown]
  - Myositis [Unknown]
  - Lower limb fracture [Unknown]
  - Fall [Unknown]
  - Foot fracture [Unknown]
  - Fracture delayed union [Unknown]
  - Post procedural haemorrhage [Recovered/Resolved]
  - Hysterectomy [Unknown]
  - Anaemia postoperative [Recovered/Resolved]
  - Blood cholesterol increased [Unknown]
  - Muscle spasms [Unknown]
  - Drug ineffective [Unknown]
  - Drug ineffective [Unknown]
  - Drug ineffective [Unknown]
  - Myalgia [Unknown]
  - Abdominal pain [Unknown]
